FAERS Safety Report 9160228 (Version 4)
Quarter: 2014Q2

REPORT INFORMATION
  Report Type: Report from Study
  Country: CA (occurrence: CA)
  Receive Date: 20130313
  Receipt Date: 20140618
  Transmission Date: 20141212
  Serious: Yes (Other)
  Sender: FDA-Public Use
  Company Number: CA-ROCHE-1200593

PATIENT
  Age: 78 Year
  Sex: Female
  Weight: 81 kg

DRUGS (12)
  1. PARIET [Concomitant]
  2. AVALIDE [Concomitant]
     Indication: BLOOD PRESSURE
  3. VITAMIN C [Concomitant]
  4. FOLIC ACID [Concomitant]
  5. ACTEMRA [Suspect]
     Indication: RHEUMATOID ARTHRITIS
     Route: 042
     Dates: start: 20101109
  6. ACTEMRA [Suspect]
     Route: 042
     Dates: start: 20101207
  7. ACTEMRA [Suspect]
     Route: 042
     Dates: start: 20111028
  8. ACTEMRA [Suspect]
     Route: 042
     Dates: start: 20121016
  9. ACTEMRA [Suspect]
     Route: 042
     Dates: start: 20130801
  10. ACTEMRA [Suspect]
     Route: 042
  11. METHOTREXATE [Concomitant]
  12. MELOXICAM [Concomitant]

REACTIONS (3)
  - Weight decreased [Unknown]
  - Viral infection [Unknown]
  - Weight increased [Not Recovered/Not Resolved]
